APPROVED DRUG PRODUCT: FENOPROFEN CALCIUM
Active Ingredient: FENOPROFEN CALCIUM
Strength: EQ 200MG BASE
Dosage Form/Route: CAPSULE;ORAL
Application: A214475 | Product #002
Applicant: RISING PHARMA HOLDINGS INC
Approved: Jul 26, 2024 | RLD: No | RS: No | Type: RX